FAERS Safety Report 6875042-7 (Version None)
Quarter: 2010Q3

REPORT INFORMATION
  Report Type: 
  Country: None (occurrence: None)
  Receive Date: 20100727
  Receipt Date: 20100722
  Transmission Date: 20110219
  Serious: Yes (Death, Other)
  Sender: FDA-Public Use
  Company Number: IN-AMGEN-UK291050

PATIENT
  Sex: Male

DRUGS (6)
  1. DENOSUMAB [Suspect]
     Indication: METASTASES TO BONE
     Route: 058
     Dates: start: 20070820, end: 20080623
  2. ZOMETA [Suspect]
     Indication: METASTASES TO BONE
     Route: 042
     Dates: start: 20070820, end: 20080623
  3. CYCLOPHOSPHAMIDE [Concomitant]
     Dates: start: 20080625
  4. VINCRISTINE [Concomitant]
     Dates: start: 20080625
  5. DEXAMETHASONE [Concomitant]
     Route: 048
     Dates: start: 20070628
  6. CALCIUM CARBONATE/VITAMIN D3 [Concomitant]
     Route: 048
     Dates: start: 20070828, end: 20080625

REACTIONS (2)
  - DEATH [None]
  - MALIGNANT NEOPLASM PROGRESSION [None]
